FAERS Safety Report 7458177 (Version 2)
Quarter: 2012Q4

REPORT INFORMATION
  Report Type: Report from Study
  Country: JP (occurrence: JP)
  Receive Date: 20100708
  Receipt Date: 20120913
  Transmission Date: 20130627
  Serious: Yes (Death, Other)
  Sender: FDA-Public Use
  Company Number: PHHY2010JP42740

PATIENT
  Age: 81 Year
  Sex: Male

DRUGS (12)
  1. DEFERASIROX [Suspect]
     Indication: MYELODYSPLASTIC SYNDROME
     Dosage: 125 mg/day
     Route: 048
     Dates: start: 20100210, end: 20100301
  2. DEFERASIROX [Suspect]
     Indication: IRON OVERLOAD
  3. NEUTROGIN [Concomitant]
     Dosage: 100 ug, UNK
     Dates: start: 20100212
  4. MEROPEN [Concomitant]
     Dosage: 1.5 g, UNK
     Dates: start: 20100209, end: 20100217
  5. LEVOFLOXACIN [Concomitant]
     Dosage: 400 mg, UNK
     Route: 048
     Dates: start: 20100218, end: 20100218
  6. CIPROFLOXACIN [Concomitant]
     Dosage: 600 mg, UNK
     Dates: start: 20100218, end: 20100315
  7. FIRSTCIN [Concomitant]
     Dosage: 3 g, UNK
     Dates: start: 20100315, end: 20100326
  8. ISEPACIN [Concomitant]
     Dosage: 400 mg, UNK
     Dates: start: 20100315, end: 20100324
  9. LASIX [Concomitant]
     Dosage: 20 mg, UNK
     Dates: start: 20091206
  10. LACTULOSE [Concomitant]
     Dosage: 18 g, UNK
     Dates: start: 20091003
  11. THYRADIN [Concomitant]
     Dosage: 100 ug, UNK
     Route: 048
     Dates: start: 2006
  12. RED BLOOD CELLS, CONCENTRATED [Concomitant]

REACTIONS (5)
  - Pneumonia [Fatal]
  - Infection [Unknown]
  - Blood urea increased [Unknown]
  - Cellulitis orbital [Recovering/Resolving]
  - Vomiting [Recovering/Resolving]
